FAERS Safety Report 20340248 (Version 2)
Quarter: 2022Q1

REPORT INFORMATION
  Report Type: Spontaneous
  Country: IR (occurrence: IR)
  Receive Date: 20220117
  Receipt Date: 20220210
  Transmission Date: 20220423
  Serious: Yes (Death, Other)
  Sender: FDA-Public Use
  Company Number: IR-GILEAD-2022-0565370

PATIENT
  Age: 3 Year
  Sex: Male

DRUGS (1)
  1. AMPHOTERICIN B [Suspect]
     Active Substance: AMPHOTERICIN B
     Indication: Pneumonia
     Route: 042

REACTIONS (2)
  - Cardiac failure [Fatal]
  - Hyperhidrosis [Not Recovered/Not Resolved]
